FAERS Safety Report 15111825 (Version 1)
Quarter: 2018Q3

REPORT INFORMATION
  Report Type: Spontaneous
  Country: GR (occurrence: GR)
  Receive Date: 20180705
  Receipt Date: 20180705
  Transmission Date: 20181010
  Serious: Yes (Other)
  Sender: FDA-Public Use
  Company Number: GR-JNJFOC-20180634648

PATIENT

DRUGS (3)
  1. INFLIXIMAB, RECOMBINANT [Suspect]
     Active Substance: INFLIXIMAB
     Indication: SPONDYLITIS
     Route: 042
  2. INFLIXIMAB, RECOMBINANT [Suspect]
     Active Substance: INFLIXIMAB
     Indication: ANKYLOSING SPONDYLITIS
     Route: 042
  3. INFLIXIMAB, RECOMBINANT [Suspect]
     Active Substance: INFLIXIMAB
     Indication: PSORIATIC ARTHROPATHY
     Route: 042

REACTIONS (11)
  - Demyelination [Unknown]
  - Rash [Unknown]
  - Drug ineffective [Unknown]
  - Sepsis [Unknown]
  - Extrapulmonary tuberculosis [Unknown]
  - Respiratory tract infection [Unknown]
  - Infection [Unknown]
  - Adverse event [Unknown]
  - Pulmonary tuberculosis [Unknown]
  - Bladder cancer [Unknown]
  - Infusion related reaction [Unknown]
